FAERS Safety Report 12509867 (Version 3)
Quarter: 2016Q3

REPORT INFORMATION
  Report Type: Spontaneous
  Country: FR (occurrence: FR)
  Receive Date: 20160629
  Receipt Date: 20160804
  Transmission Date: 20161109
  Serious: Yes (Death)
  Sender: FDA-Public Use
  Company Number: FR-JNJFOC-20160623094

PATIENT
  Age: 75 Year
  Sex: Male

DRUGS (8)
  1. KETOPROFENE ACTAVIS [Suspect]
     Active Substance: KETOPROFEN
     Indication: PAIN
     Dosage: INTRAVENOUS
     Route: 048
     Dates: start: 20150204, end: 201502
  2. TOPALGIC [Suspect]
     Active Substance: TRAMADOL
     Indication: PRODUCT USED FOR UNKNOWN INDICATION
     Route: 065
     Dates: start: 20150204, end: 20150209
  3. NEFOPAM HYDROCHLORIDE [Concomitant]
     Active Substance: NEFOPAM HYDROCHLORIDE
     Indication: PRODUCT USED FOR UNKNOWN INDICATION
     Route: 042
     Dates: start: 20150204, end: 20150204
  4. PANTOPRAZOLE [Suspect]
     Active Substance: PANTOPRAZOLE SODIUM
     Indication: PRODUCT USED FOR UNKNOWN INDICATION
     Dosage: CUMULATIVE DOSE TO FIRST REACTION- 5 DOSAGE FORMS
     Route: 042
     Dates: start: 20150206, end: 20150208
  5. DOLIPRANE [Suspect]
     Active Substance: ACETAMINOPHEN
     Indication: PRODUCT USED FOR UNKNOWN INDICATION
     Dosage: 6 GRAMS- CUMULATIVE DOSE TO FIRST REACTION
     Route: 065
     Dates: start: 20150204, end: 20150210
  6. KETOPROFEN. [Suspect]
     Active Substance: KETOPROFEN
     Indication: PAIN
     Dosage: ORAL
     Route: 042
     Dates: start: 201502, end: 20150210
  7. KETOPROFENE ACTAVIS [Suspect]
     Active Substance: KETOPROFEN
     Indication: PAIN
     Dosage: ORAL
     Route: 048
     Dates: start: 201502, end: 20150210
  8. KETOPROFEN. [Suspect]
     Active Substance: KETOPROFEN
     Indication: PAIN
     Route: 042
     Dates: start: 20150204, end: 201502

REACTIONS (4)
  - Peritonitis [Fatal]
  - Cholecystitis [Fatal]
  - Intestinal anastomosis complication [Fatal]
  - Colonic abscess [Fatal]

NARRATIVE: CASE EVENT DATE: 20150209
